FAERS Safety Report 7328966-0 (Version None)
Quarter: 2011Q1

REPORT INFORMATION
  Report Type: 
  Country: None (occurrence: None)
  Receive Date: 20110218
  Receipt Date: 20110127
  Transmission Date: 20110831
  Serious: Yes (Hospitalization)
  Sender: FDA-Public Use
  Company Number: BE-021990

PATIENT
  Age: 76 Year
  Sex: Male

DRUGS (2)
  1. (OFATUMUMAB) [Suspect]
     Indication: CHRONIC LYMPHOCYTIC LEUKAEMIA
     Dosage: INJECTION 300MG DAY 1, 1000MG DAY 8 FOLLOWED BY 1000MG EVERY 28 DAYS INTRAVENOUS
     Route: 042
     Dates: start: 20100318
  2. (CHLORAMBUCIL) [Suspect]
     Indication: CHRONIC LYMPHOCYTIC LEUKAEMIA
     Dosage: 10 MGM2 DAYS 1-7 EVERY 28 DAYS ORAL
     Route: 048
     Dates: start: 20100318

REACTIONS (2)
  - PYREXIA [None]
  - CHILLS [None]
